FAERS Safety Report 10081378 (Version 1)
Quarter: 2014Q2

REPORT INFORMATION
  Report Type: Spontaneous
  Country: US (occurrence: None)
  Receive Date: 20140415
  Receipt Date: 20140415
  Transmission Date: 20141212
  Serious: Yes (Other)
  Sender: FDA-Public Use
  Company Number: None

PATIENT
  Age: 59 Year
  Sex: Female

DRUGS (1)
  1. DIFICID [Suspect]
     Route: 048
     Dates: start: 20140321, end: 20140328

REACTIONS (2)
  - Blood potassium increased [None]
  - Blood bicarbonate decreased [None]
